FAERS Safety Report 21799592 (Version 1)
Quarter: 2022Q4

REPORT INFORMATION
  Report Type: Spontaneous
  Country: RU (occurrence: RU)
  Receive Date: 20221230
  Receipt Date: 20221230
  Transmission Date: 20230113
  Serious: Yes (Hospitalization)
  Sender: FDA-Public Use
  Company Number: RU-drreddys-LIT/RUS/22/0159202

PATIENT
  Age: 56 Year

DRUGS (11)
  1. CLOPIDOGREL [Suspect]
     Active Substance: CLOPIDOGREL BISULFATE
     Indication: Angina pectoris
  2. ENALAPRIL MALEATE [Suspect]
     Active Substance: ENALAPRIL MALEATE
     Indication: Product used for unknown indication
  3. ASPIRIN [Suspect]
     Active Substance: ASPIRIN
     Indication: Angina pectoris
  4. PERINDOPRIL [Suspect]
     Active Substance: PERINDOPRIL
     Indication: Angina pectoris
  5. BISOPROLOL [Suspect]
     Active Substance: BISOPROLOL
     Indication: Angina pectoris
  6. TICAGRELOR [Suspect]
     Active Substance: TICAGRELOR
     Indication: Product used for unknown indication
  7. CARVEDILOL [Suspect]
     Active Substance: CARVEDILOL
     Indication: Product used for unknown indication
  8. TORSEMIDE [Suspect]
     Active Substance: TORSEMIDE
     Indication: Product used for unknown indication
  9. ATORVASTATIN CALCIUM [Suspect]
     Active Substance: ATORVASTATIN CALCIUM
     Indication: Product used for unknown indication
  10. INSPRA [Suspect]
     Active Substance: EPLERENONE
     Indication: Myocardial infarction
     Dosage: AT AN INITIAL DOSAGE OF 25 MG/DAY UNDER THE CONTROL OF BLOOD POTASSIUM LEVELS, FOLLOWED BY AN INCREA
  11. INSPRA [Suspect]
     Active Substance: EPLERENONE
     Dosage: AT AN INITIAL DOSAGE OF 25 MG/DAY UNDER THE CONTROL OF BLOOD POTASSIUM LEVELS, FOLLOWED BY AN INCREA

REACTIONS (6)
  - Coronary artery disease [Recovering/Resolving]
  - Acute myocardial infarction [Recovering/Resolving]
  - Hypertension [Recovering/Resolving]
  - Cardiac failure [Recovering/Resolving]
  - Cardiac failure acute [Recovering/Resolving]
  - Myocardial ischaemia [Recovering/Resolving]
